FAERS Safety Report 10787235 (Version 2)
Quarter: 2015Q2

REPORT INFORMATION
  Report Type: Report from Study
  Country: US (occurrence: US)
  Receive Date: 20150211
  Receipt Date: 20150603
  Transmission Date: 20150821
  Serious: Yes (Hospitalization, Other)
  Sender: FDA-Public Use
  Company Number: US-AMGEN-USASL2014084382

PATIENT
  Age: 57 Year
  Sex: Male

DRUGS (2)
  1. METHOTREXATE [Concomitant]
     Active Substance: METHOTREXATE
     Dosage: UNK
  2. ENBREL [Suspect]
     Active Substance: ETANERCEPT
     Indication: PSORIATIC ARTHROPATHY
     Dosage: 50 MG, QWK
     Route: 065
     Dates: start: 20140307, end: 201501

REACTIONS (13)
  - Prostatic operation [Recovered/Resolved]
  - Dysuria [Recovered/Resolved]
  - Osteoarthritis [Not Recovered/Not Resolved]
  - Gait disturbance [Unknown]
  - Arthralgia [Not Recovered/Not Resolved]
  - Medical device implantation [Recovered/Resolved]
  - Arthropathy [Recovered/Resolved]
  - Incision site complication [Recovered/Resolved]
  - Micturition disorder [Not Recovered/Not Resolved]
  - Incision site haemorrhage [Recovered/Resolved]
  - Cellulitis [Recovered/Resolved]
  - Arthritis infective [Not Recovered/Not Resolved]
  - Joint stiffness [Not Recovered/Not Resolved]

NARRATIVE: CASE EVENT DATE: 2014
